FAERS Safety Report 8463489-7 (Version None)
Quarter: 2012Q2

REPORT INFORMATION
  Report Type: 
  Country: None (occurrence: None)
  Receive Date: 20120625
  Receipt Date: 20120614
  Transmission Date: 20120825
  Serious: Yes (Hospitalization)
  Sender: FDA-Public Use
  Company Number: JP-VERTEX PHARMACEUTICALS INC.-AE-2012-009133

PATIENT
  Age: 69 Year
  Sex: Female

DRUGS (10)
  1. REBETOL [Concomitant]
     Route: 048
     Dates: start: 20120529, end: 20120612
  2. METHYCOOL [Concomitant]
     Route: 048
  3. ALINAMIN-F [Concomitant]
     Route: 048
  4. PEG-INTRON [Concomitant]
     Route: 048
     Dates: start: 20120530, end: 20120612
  5. PEG-INTRON [Concomitant]
     Indication: HEPATITIS C
     Route: 048
     Dates: start: 20120516, end: 20120522
  6. TELAVIC (TELAPREVIR) [Suspect]
     Indication: HEPATITIS C
     Route: 048
     Dates: start: 20120516, end: 20120612
  7. KENTON [Concomitant]
  8. SELTOUCH [Concomitant]
     Route: 061
     Dates: start: 20120521
  9. REBETOL [Concomitant]
     Indication: HEPATITIS C
     Route: 048
     Dates: start: 20120516, end: 20120528
  10. CALBLOCK [Concomitant]
     Route: 048

REACTIONS (4)
  - VOMITING [None]
  - MALAISE [None]
  - DECREASED APPETITE [None]
  - NAUSEA [None]
